FAERS Safety Report 9261470 (Version 2)
Quarter: 2013Q2

REPORT INFORMATION
  Report Type: Spontaneous
  Country: US (occurrence: US)
  Receive Date: 20130429
  Receipt Date: 20130516
  Transmission Date: 20140414
  Serious: Yes (Hospitalization)
  Sender: FDA-Public Use
  Company Number: US-BAYER-2013-051982

PATIENT
  Age: 28 Year
  Sex: Female
  Weight: 68.03 kg

DRUGS (6)
  1. YAZ [Suspect]
  2. YASMIN [Suspect]
  3. PROZAC [Concomitant]
     Dosage: 10 MG, QD
     Route: 048
     Dates: start: 20070718
  4. KEFLEX [Concomitant]
     Dosage: 750 MG, BID
     Route: 048
     Dates: start: 20070718
  5. MEPROZINE [Concomitant]
     Dosage: 50 MG ONE TO TWO TABLETS Q 8 HOURS , PRN
     Dates: start: 20070718
  6. CIPROFLOXACIN [Concomitant]
     Dosage: 500 MG, UNK
     Route: 048
     Dates: start: 20070530, end: 20070706

REACTIONS (2)
  - Pulmonary embolism [None]
  - Deep vein thrombosis [None]
